FAERS Safety Report 15074845 (Version 1)
Quarter: 2018Q2

REPORT INFORMATION
  Report Type: Spontaneous
  Country: US (occurrence: US)
  Receive Date: 20180627
  Receipt Date: 20180627
  Transmission Date: 20180711
  Serious: Yes (Other)
  Sender: FDA-Public Use
  Company Number: US-SAOL THERAPEUTICS-2017SAO01476

PATIENT
  Age: 21 Year
  Sex: Male

DRUGS (10)
  1. VITAMIN D [Concomitant]
     Active Substance: CHOLECALCIFEROL
     Dosage: UNK, 1X/DAY
  2. MIDODRINE [Concomitant]
     Active Substance: MIDODRINE
     Dosage: 5 MG, 2X/DAY
  3. PROBIOTIC [Concomitant]
     Active Substance: PROBIOTICS NOS
     Dosage: UNK, 1X/DAY
  4. COLACE [Concomitant]
     Active Substance: DOCUSATE SODIUM
     Dosage: 100 MG, 2X/DAY
  5. GABLOFEN [Suspect]
     Active Substance: BACLOFEN
     Dosage: 128.08 ?G, \DAY
     Route: 037
     Dates: start: 20170711
  6. IMIPRAMINE [Concomitant]
     Active Substance: IMIPRAMINE
     Dosage: 25 MG, 3X/DAY
  7. LIORESAL [Suspect]
     Active Substance: BACLOFEN
     Dosage: 128.08 ?G, \DAY
     Route: 037
     Dates: start: 20170711
  8. ELLURA [Concomitant]
     Active Substance: DIETARY SUPPLEMENT
     Dosage: 1 TABLETS, 1X/DAY
  9. OXYBUTYNIN ER [Concomitant]
     Active Substance: OXYBUTYNIN
     Dosage: 10 MG, 3X/DAY
  10. SENNA [Concomitant]
     Active Substance: SENNA LEAF\SENNOSIDES\SENNOSIDES A AND B
     Dosage: 25.8 MG, EVERY 48 HOURS

REACTIONS (7)
  - Wound dehiscence [Unknown]
  - Incontinence [Unknown]
  - Medical device site scab [Unknown]
  - Headache [Unknown]
  - Urinary retention [Unknown]
  - Implant site scar [Unknown]
  - Implant site infection [Recovered/Resolved]

NARRATIVE: CASE EVENT DATE: 201707
